FAERS Safety Report 24888922 (Version 1)
Quarter: 2025Q1

REPORT INFORMATION
  Report Type: Spontaneous
  Country: US (occurrence: None)
  Receive Date: 20250124
  Receipt Date: 20250124
  Transmission Date: 20250409
  Serious: Yes (Congenital Anomaly)
  Sender: FDA-CTU
  Company Number: None

PATIENT
  Sex: Female
  Weight: 2.72 kg

DRUGS (9)
  1. DULOXETINE [Suspect]
     Active Substance: DULOXETINE
  2. ATOMOXETINE [Suspect]
     Active Substance: ATOMOXETINE
  3. MONTELUKAST [Suspect]
     Active Substance: MONTELUKAST
  4. FLUTICASONE PROPIONATE\SALMETEROL XINAFOATE [Suspect]
     Active Substance: FLUTICASONE PROPIONATE\SALMETEROL XINAFOATE
  5. PANTOPRAZOLE [Suspect]
     Active Substance: PANTOPRAZOLE
  6. LEVOTHYROXINE [Suspect]
     Active Substance: LEVOTHYROXINE
  7. ETANERCEPT [Suspect]
     Active Substance: ETANERCEPT
  8. ONDANSETRON [Suspect]
     Active Substance: ONDANSETRON
  9. PROPRANOLOL HYDROCHLORIDE [Suspect]
     Active Substance: PROPRANOLOL HYDROCHLORIDE

REACTIONS (1)
  - Infantile haemangioma [None]

NARRATIVE: CASE EVENT DATE: 20211028
